FAERS Safety Report 19249370 (Version 3)
Quarter: 2021Q3

REPORT INFORMATION
  Report Type: Report from Study
  Country: US (occurrence: US)
  Receive Date: 20210512
  Receipt Date: 20210927
  Transmission Date: 20211014
  Serious: Yes (Other)
  Sender: FDA-Public Use
  Company Number: US-UCBSA-2021021685

PATIENT
  Age: 33 Year
  Sex: Female
  Weight: 70.3 kg

DRUGS (4)
  1. CERTOLIZUMAB PEGOL [Suspect]
     Active Substance: CERTOLIZUMAB PEGOL
     Indication: CROHN^S DISEASE
     Dosage: UNK
  2. BUDESONIDE. [Concomitant]
     Active Substance: BUDESONIDE
     Indication: CROHN^S DISEASE
  3. CERTOLIZUMAB PEGOL [Suspect]
     Active Substance: CERTOLIZUMAB PEGOL
     Indication: ANKYLOSING SPONDYLITIS
  4. BUDESONIDE. [Concomitant]
     Active Substance: BUDESONIDE
     Indication: ANKYLOSING SPONDYLITIS

REACTIONS (3)
  - Congenital skin dimples [Not Recovered/Not Resolved]
  - Joint injury [Unknown]
  - Procedural pain [Unknown]

NARRATIVE: CASE EVENT DATE: 2021
